FAERS Safety Report 5118011-X (Version None)
Quarter: 2006Q3

REPORT INFORMATION
  Report Type: 
  Country: None (occurrence: None)
  Receive Date: 20060929
  Receipt Date: 20060313
  Transmission Date: 20061208
  Serious: Yes (Other)
  Sender: FDA-Public Use
  Company Number: US-GLAXOSMITHKLINE-A0597349A

PATIENT
  Sex: Female

DRUGS (3)
  1. EPIVIR-HBV [Suspect]
     Dosage: 100MG PER DAY
     Route: 048
  2. HYDROCHLOROTHIAZDE TAB [Concomitant]
  3. FOSAMAX [Concomitant]

REACTIONS (1)
  - PARAESTHESIA [None]
